FAERS Safety Report 14659203 (Version 1)
Quarter: 2018Q1

REPORT INFORMATION
  Report Type: Spontaneous
  Country: US (occurrence: US)
  Receive Date: 20180317
  Receipt Date: 20180317
  Transmission Date: 20180509
  Serious: No
  Sender: FDA-Public Use
  Company Number: None

PATIENT
  Age: 59 Year
  Sex: Female

DRUGS (1)
  1. REMICADE [Suspect]
     Active Substance: INFLIXIMAB
     Indication: RHEUMATOID ARTHRITIS
     Dosage: 200MG WEEKS 0 AND 2 IV
     Route: 042
     Dates: start: 20180130, end: 20180306

REACTIONS (4)
  - Gait inability [None]
  - Rash [None]
  - Headache [None]
  - Joint swelling [None]

NARRATIVE: CASE EVENT DATE: 20180301
